FAERS Safety Report 11515775 (Version 1)
Quarter: 2015Q3

REPORT INFORMATION
  Report Type: Report from Study
  Country: US (occurrence: US)
  Receive Date: 20150916
  Receipt Date: 20150916
  Transmission Date: 20151125
  Serious: No
  Sender: FDA-Public Use
  Company Number: US-B.I. PHARMACEUTICALS,INC./RIDGEFIELD-2015-BI-48816BP

PATIENT
  Age: 66 Year
  Sex: Female

DRUGS (2)
  1. MELOXICAM. [Suspect]
     Active Substance: MELOXICAM
     Indication: INFLAMMATION
     Route: 048
  2. MELOXICAM. [Suspect]
     Active Substance: MELOXICAM
     Indication: PAIN

REACTIONS (2)
  - Muscle spasms [Unknown]
  - Dyspnoea [Unknown]

NARRATIVE: CASE EVENT DATE: 20090410
